FAERS Safety Report 5812225-9 (Version None)
Quarter: 2008Q3

REPORT INFORMATION
  Report Type: 
  Country: None (occurrence: None)
  Receive Date: 20080714
  Receipt Date: 20080702
  Transmission Date: 20090109
  Serious: Yes (Other)
  Sender: FDA-Public Use
  Company Number: 08H-107-0314536-00

PATIENT
  Age: 29 Year
  Sex: Male
  Weight: 80 kg

DRUGS (12)
  1. EPINEPHRINE [Suspect]
     Indication: RHINOPLASTY
     Dosage: 1 MG, ONCE, LOCAL INFILTRATION
  2. LIDOCAINE 2% + EPINEPHRINE (1:200,000) (XYLOCAINE-EPINEPHRINE) [Suspect]
     Indication: RHINOPLASTY
     Dosage: 50 ML, LOCAL INFILTRATION
  3. ATROPINE [Concomitant]
  4. MIDAZOLAM HCL [Concomitant]
  5. FENTANYL [Concomitant]
  6. PROPOFOL [Concomitant]
  7. VECURONIUM (VECURONIUM) [Concomitant]
  8. OXYGEN (OXYGEN) [Concomitant]
  9. OPHTHALMIC CREAM (OPHTHALMOLOGICALS) [Concomitant]
  10. 1-3% SEVOFLURANE (SEVOFLURANE) [Concomitant]
  11. METAMIZOLE (METAMIZOLE) [Concomitant]
  12. HARTMANN SOLUTION (RINGER-LACTATE /01126301/) [Concomitant]

REACTIONS (5)
  - HYPERTENSION [None]
  - MYDRIASIS [None]
  - OPERATIVE HAEMORRHAGE [None]
  - TACHYCARDIA [None]
  - VISION BLURRED [None]
